FAERS Safety Report 9825022 (Version 1)
Quarter: 2014Q1

REPORT INFORMATION
  Report Type: Spontaneous
  Country: US (occurrence: None)
  Receive Date: 20140115
  Receipt Date: 20140115
  Transmission Date: 20141002
  Serious: Yes (Hospitalization)
  Sender: FDA-Public Use
  Company Number: None

PATIENT
  Age: 66 Year
  Sex: Male

DRUGS (9)
  1. OCTREOTIDE [Suspect]
     Route: 058
     Dates: start: 20130426
  2. LOVENOX [Concomitant]
  3. PREDNISONE [Concomitant]
  4. NEUPOEGEN [Concomitant]
  5. ACYCLOVIR [Concomitant]
  6. MULTI-VIT [Concomitant]
  7. DIPHEN-ATROPINE [Concomitant]
  8. ZOMETA [Concomitant]
  9. CALCIUM-D [Concomitant]

REACTIONS (1)
  - Drug dose omission [None]
